FAERS Safety Report 6032415-2 (Version None)
Quarter: 2008Q4

REPORT INFORMATION
  Report Type: 
  Country: None (occurrence: None)
  Receive Date: 20081222
  Receipt Date: 20080903
  Transmission Date: 20090506
  Serious: No
  Sender: FDA-Public Use
  Company Number: US-WYE-H05897208

PATIENT
  Age: 25 Year
  Sex: Female
  Weight: 49.94 kg

DRUGS (2)
  1. PRISTIQ [Suspect]
     Indication: DEPRESSION
     Dosage: 50 MG 1X PER DAY, ORAL
     Route: 048
     Dates: start: 20080826
  2. KLONOPIN [Concomitant]

REACTIONS (2)
  - FATIGUE [None]
  - LETHARGY [None]
